FAERS Safety Report 6604584-4 (Version None)
Quarter: 2010Q1

REPORT INFORMATION
  Report Type: 
  Country: None (occurrence: None)
  Receive Date: 20100226
  Receipt Date: 20091210
  Transmission Date: 20100710
  Serious: No
  Sender: FDA-Public Use
  Company Number: A0834578A

PATIENT
  Sex: Male

DRUGS (1)
  1. LAMICTAL CD [Suspect]

REACTIONS (2)
  - ALBUMIN URINE [None]
  - URINE ABNORMALITY [None]
